FAERS Safety Report 17845851 (Version 1)
Quarter: 2020Q2

REPORT INFORMATION
  Report Type: Spontaneous
  Country: US (occurrence: US)
  Receive Date: 20200601
  Receipt Date: 20200601
  Transmission Date: 20200714
  Serious: Yes (Hospitalization)
  Sender: FDA-Public Use
  Company Number: None

PATIENT
  Age: 76 Year
  Sex: Male
  Weight: 115.21 kg

DRUGS (2)
  1. LOSARTAN (LOSARTAN POTASSIUM 100MG TAB) [Suspect]
     Active Substance: LOSARTAN POTASSIUM
     Route: 048
     Dates: start: 20100524, end: 20200128
  2. SPIRONOLACTONE (SPIRONOLACTONE 25MG TAB) [Suspect]
     Active Substance: SPIRONOLACTONE
     Route: 048
     Dates: start: 20070308, end: 20200128

REACTIONS (2)
  - Hyperkalaemia [None]
  - Acute kidney injury [None]

NARRATIVE: CASE EVENT DATE: 20200128
